FAERS Safety Report 25341247 (Version 1)
Quarter: 2025Q2

REPORT INFORMATION
  Report Type: Spontaneous
  Country: AT (occurrence: AT)
  Receive Date: 20250521
  Receipt Date: 20250521
  Transmission Date: 20250716
  Serious: Yes (Other)
  Sender: JOHNSON AND JOHNSON
  Company Number: AT-JNJFOC-20241211876

PATIENT
  Age: 51 Year
  Sex: Female

DRUGS (6)
  1. DARZALEX [Suspect]
     Active Substance: DARATUMUMAB
     Indication: Primary amyloidosis
     Route: 065
     Dates: start: 202406
  2. DARZALEX [Suspect]
     Active Substance: DARATUMUMAB
     Route: 065
     Dates: start: 202407
  3. DARZALEX [Suspect]
     Active Substance: DARATUMUMAB
     Route: 065
     Dates: start: 202408
  4. VELCADE [Suspect]
     Active Substance: BORTEZOMIB
     Indication: Primary amyloidosis
     Route: 065
  5. NINLARO [Suspect]
     Active Substance: IXAZOMIB CITRATE
     Indication: Primary amyloidosis
     Route: 065
     Dates: start: 202408
  6. NINLARO [Suspect]
     Active Substance: IXAZOMIB CITRATE
     Route: 065
     Dates: start: 202409

REACTIONS (4)
  - Drug ineffective [Unknown]
  - Primary amyloidosis [Unknown]
  - Polyneuropathy [Unknown]
  - Off label use [Unknown]
